FAERS Safety Report 24068145 (Version 1)
Quarter: 2024Q3

REPORT INFORMATION
  Report Type: Spontaneous
  Country: HR (occurrence: HR)
  Receive Date: 20240710
  Receipt Date: 20240710
  Transmission Date: 20241017
  Serious: Yes (Other)
  Sender: CHEPLAPHARM
  Company Number: None

PATIENT
  Age: 60 Year
  Sex: Female

DRUGS (7)
  1. CLONAZEPAM [Suspect]
     Active Substance: CLONAZEPAM
     Indication: Suicide attempt
     Route: 048
     Dates: start: 20240530, end: 20240530
  2. RISPERIDONE [Suspect]
     Active Substance: RISPERIDONE
     Indication: Suicide attempt
     Dosage: ADR IS ADEQUATELY LABELLED: YES.
     Route: 048
     Dates: start: 20240530, end: 20240530
  3. MIRTAZAPINE [Suspect]
     Active Substance: MIRTAZAPINE
     Indication: Suicide attempt
     Dosage: ADR IS ADEQUATELY LABELLED: NO.
     Route: 048
     Dates: start: 20240530, end: 20240530
  4. PRAZINE (PROMAZINE HYDROCHLORIDE) [Suspect]
     Active Substance: PROMAZINE HYDROCHLORIDE
     Indication: Suicide attempt
     Dosage: ADR IS ADEQUATELY LABELLED: NO.
     Route: 048
     Dates: start: 20240530, end: 20240530
  5. OLANZAPINE [Suspect]
     Active Substance: OLANZAPINE
     Indication: Suicide attempt
     Dosage: ADR IS ADEQUATELY LABELLED: YES.
     Route: 048
     Dates: start: 20240530, end: 20240530
  6. MELOXICAM [Suspect]
     Active Substance: MELOXICAM
     Indication: Suicide attempt
     Dosage: ADR IS ADEQUATELY LABELLED: NO.
     Route: 048
     Dates: start: 20240530, end: 20240530
  7. VENLAFAXINE HYDROCHLORIDE [Suspect]
     Active Substance: VENLAFAXINE HYDROCHLORIDE
     Indication: Suicide attempt
     Dosage: ADR IS ADEQUATELY LABELLED: YES.
     Route: 048
     Dates: start: 20240530, end: 20240530

REACTIONS (2)
  - Suicide attempt [Unknown]
  - Hyporesponsive to stimuli [Unknown]

NARRATIVE: CASE EVENT DATE: 20240530
